FAERS Safety Report 4776298-7 (Version None)
Quarter: 2005Q3

REPORT INFORMATION
  Report Type: 
  Country: None (occurrence: None)
  Receive Date: 20050921
  Receipt Date: 20050915
  Transmission Date: 20060218
  Serious: No
  Sender: FDA-Public Use
  Company Number: 2005-132586-NL

PATIENT
  Age: 70 Year
  Sex: Male

DRUGS (1)
  1. MIRTAZAPINE [Suspect]

REACTIONS (1)
  - SEROTONIN SYNDROME [None]
